FAERS Safety Report 4541009-7 (Version None)
Quarter: 2004Q4

REPORT INFORMATION
  Report Type: 
  Country: None (occurrence: None)
  Receive Date: 20041228
  Receipt Date: 20041220
  Transmission Date: 20050328
  Serious: Yes (Other)
  Sender: FDA-Public Use
  Company Number: 200413413GDS

PATIENT
  Age: 63 Year
  Sex: Male

DRUGS (2)
  1. GLUCOABY (ACARBOSE) [Suspect]
     Indication: DIABETES MELLITUS NON-INSULIN-DEPENDENT
     Dates: start: 20030601
  2. BASEN [Concomitant]

REACTIONS (3)
  - FIBROSIS [None]
  - FOREIGN BODY TRAUMA [None]
  - PNEUMATOSIS CYSTOIDES INTESTINALIS [None]
